FAERS Safety Report 22641929 (Version 6)
Quarter: 2025Q2

REPORT INFORMATION
  Report Type: Spontaneous
  Country: US (occurrence: US)
  Receive Date: 20230626
  Receipt Date: 20250403
  Transmission Date: 20250716
  Serious: No
  Sender: PFIZER
  Company Number: US-PFIZER INC-PV202300110432

PATIENT
  Age: 34 Year
  Sex: Male

DRUGS (12)
  1. SOMAVERT [Suspect]
     Active Substance: PEGVISOMANT
     Dosage: 30 MG, DAILY IN THE MORNING
     Route: 058
     Dates: start: 20230211
  2. SOMAVERT [Suspect]
     Active Substance: PEGVISOMANT
     Dosage: 30 MG, DAILY
     Route: 058
     Dates: start: 20230415
  3. ADDERALL [Concomitant]
     Active Substance: AMPHETAMINE ASPARTATE\AMPHETAMINE SULFATE\DEXTROAMPHETAMINE SACCHARATE\DEXTROAMPHETAMINE SULFATE
  4. ADDERALL [Concomitant]
     Active Substance: AMPHETAMINE ASPARTATE\AMPHETAMINE SULFATE\DEXTROAMPHETAMINE SACCHARATE\DEXTROAMPHETAMINE SULFATE
  5. GABAPENTIN [Concomitant]
     Active Substance: GABAPENTIN
  6. METHOCARBAMOL [Concomitant]
     Active Substance: METHOCARBAMOL
  7. TESTOSTERONE CYPIONATE [Concomitant]
     Active Substance: TESTOSTERONE CYPIONATE
  8. MOUNJARO [Concomitant]
     Active Substance: TIRZEPATIDE
  9. MOUNJARO [Concomitant]
     Active Substance: TIRZEPATIDE
  10. MOUNJARO [Concomitant]
     Active Substance: TIRZEPATIDE
  11. OCTREOTIDE [Concomitant]
     Active Substance: OCTREOTIDE
  12. SANDOSTATIN LAR DEPOT [Concomitant]
     Active Substance: OCTREOTIDE ACETATE

REACTIONS (5)
  - Fatigue [Unknown]
  - Alopecia [Unknown]
  - Abdominal discomfort [Not Recovered/Not Resolved]
  - Constipation [Not Recovered/Not Resolved]
  - Product dose omission issue [Unknown]
